FAERS Safety Report 5232600-3 (Version None)
Quarter: 2007Q1

REPORT INFORMATION
  Report Type: 
  Country: None (occurrence: None)
  Receive Date: 20070206
  Receipt Date: 20070206
  Transmission Date: 20070707
  Serious: Yes (Hospitalization)
  Sender: FDA-Public Use
  Company Number: None

PATIENT
  Age: 80 Year
  Sex: Male
  Weight: 41.7309 kg

DRUGS (11)
  1. DIGOXIN [Suspect]
     Indication: ATRIAL FIBRILLATION
     Dosage: 0.125 MG ONCE DAILY PO
     Route: 048
     Dates: start: 19920923, end: 20061002
  2. DIGOXIN [Concomitant]
  3. FUROSEMIDE [Concomitant]
  4. METOPROLOL SUCCINATE [Concomitant]
  5. ACETAMINOPHEN [Concomitant]
  6. POLYETHYLENE GLYCOL [Concomitant]
  7. POTASSIUM CHLORIDE [Concomitant]
  8. SPIRONOLACTONE [Concomitant]
  9. TAMSULOSIN HCL [Concomitant]
  10. VALSARTAN [Concomitant]
  11. WARFARIN [Concomitant]

REACTIONS (10)
  - ABNORMAL BEHAVIOUR [None]
  - ANOREXIA [None]
  - DIARRHOEA [None]
  - GENERAL PHYSICAL HEALTH DETERIORATION [None]
  - HALLUCINATION, VISUAL [None]
  - MENTAL STATUS CHANGES [None]
  - ORAL INTAKE REDUCED [None]
  - THERAPEUTIC AGENT TOXICITY [None]
  - WEIGHT DECREASED [None]
  - XANTHOPSIA [None]
